FAERS Safety Report 8950634 (Version 1)
Quarter: 2012Q4

REPORT INFORMATION
  Report Type: 
  Country: JP (occurrence: JP)
  Receive Date: 20121207
  Receipt Date: 20121207
  Transmission Date: 20130627
  Serious: Yes (Other)
  Sender: FDA-Public Use
  Company Number: JP-009507513-2012SP024423

PATIENT
  Age: 68 Year
  Sex: Male
  Weight: 83 kg

DRUGS (11)
  1. PEGINTRON [Suspect]
     Indication: CHRONIC HEPATITIS C
     Dosage: 1.5Microgram per kilogram, QW
     Route: 058
     Dates: start: 20120410, end: 20120416
  2. PEGINTRON [Suspect]
     Dosage: 0.75 Microgram per kilogram, QW
     Route: 058
     Dates: start: 20120417, end: 20120423
  3. REBETOL [Suspect]
     Indication: CHRONIC HEPATITIS C
     Dosage: 800 mg, QD
     Route: 048
     Dates: start: 20120410, end: 20120424
  4. TELAVIC [Suspect]
     Indication: CHRONIC HEPATITIS C
     Dosage: 1500 mg, QD
     Route: 048
     Dates: start: 20120410, end: 20120424
  5. ZYLORIC [Suspect]
     Indication: HYPERURICAEMIA
     Dosage: 200 mg, QD; formulation-POR
     Route: 048
     Dates: start: 20120417
  6. URSO [Concomitant]
     Indication: CHRONIC HEPATITIS C
     Dosage: 900mg, qd; FORMULATION: POR
     Route: 048
  7. LIVACT [Concomitant]
     Indication: CHRONIC HEPATITIS C
     Dosage: 12.45g, qd; FORMULATION: POR
     Route: 048
  8. LIVACT [Concomitant]
     Route: 048
  9. MYSLEE [Concomitant]
     Indication: INSOMNIA
     Dosage: 10MG/DAY AS NEEDED; FORMULATION: POR
     Route: 048
  10. PROMAC (POLAPREZINC) [Concomitant]
     Indication: GASTRIC CANCER
     Dosage: 150mg, qd; FORMULATION: POR
     Route: 048
  11. PROMAC (POLAPREZINC) [Concomitant]
     Indication: PROPHYLAXIS AGAINST GASTROINTESTINAL ULCER

REACTIONS (1)
  - Liver disorder [Recovered/Resolved]
